FAERS Safety Report 12641462 (Version 1)
Quarter: 2016Q3

REPORT INFORMATION
  Report Type: Report from Study
  Country: US (occurrence: US)
  Receive Date: 20160810
  Receipt Date: 20160810
  Transmission Date: 20161109
  Serious: Yes (Other)
  Sender: FDA-Public Use
  Company Number: US-ABBVIE-16K-163-1691613-00

PATIENT
  Sex: Female

DRUGS (2)
  1. HUMIRA [Suspect]
     Active Substance: ADALIMUMAB
     Indication: PSORIATIC ARTHROPATHY
     Route: 058
     Dates: start: 2011, end: 2015
  2. HYDROCODONE [Concomitant]
     Active Substance: HYDROCODONE
     Indication: PAIN

REACTIONS (4)
  - Loss of consciousness [Recovered/Resolved]
  - Dizziness [Recovered/Resolved]
  - Hypotension [Unknown]
  - Dehydration [Recovered/Resolved]

NARRATIVE: CASE EVENT DATE: 2014
